FAERS Safety Report 15173222 (Version 2)
Quarter: 2018Q3

REPORT INFORMATION
  Report Type: Spontaneous
  Country: US (occurrence: US)
  Receive Date: 20180720
  Receipt Date: 20180815
  Transmission Date: 20181010
  Serious: Yes (Other)
  Sender: FDA-Public Use
  Company Number: US-BRISTOL-MYERS SQUIBB COMPANY-BMS-2018-064716

PATIENT
  Sex: Female
  Weight: 60.91 kg

DRUGS (1)
  1. NULOJIX [Suspect]
     Active Substance: BELATACEPT
     Indication: RENAL TRANSPLANT
     Dosage: 325 MG, Q4WK
     Route: 042
     Dates: start: 201710

REACTIONS (7)
  - Arrhythmia [Unknown]
  - Dizziness [Unknown]
  - Eye disorder [Unknown]
  - Off label use [Unknown]
  - Hypotension [Unknown]
  - Cardiac disorder [Unknown]
  - Respiratory disorder [Unknown]
